FAERS Safety Report 7544116-X (Version None)
Quarter: 2011Q2

REPORT INFORMATION
  Report Type: 
  Country: None (occurrence: None)
  Receive Date: 20110613
  Receipt Date: 20051125
  Transmission Date: 20111010
  Serious: Yes (Death, Hospitalization)
  Sender: FDA-Public Use
  Company Number: PHHO2005BR18529

PATIENT
  Age: 49 Year
  Sex: Female
  Weight: 125 kg

DRUGS (1)
  1. DIOVAN [Suspect]
     Dosage: 80 MG, QD

REACTIONS (4)
  - HEPATIC CIRRHOSIS [None]
  - MALAISE [None]
  - RESPIRATORY FAILURE [None]
  - MULTI-ORGAN FAILURE [None]
